FAERS Safety Report 12713608 (Version 1)
Quarter: 2016Q3

REPORT INFORMATION
  Report Type: Report from Study
  Country: JP (occurrence: JP)
  Receive Date: 20160903
  Receipt Date: 20160903
  Transmission Date: 20161109
  Serious: Yes (Other)
  Sender: FDA-Public Use
  Company Number: JP-AMGEN-JPNNI2016080176

PATIENT
  Age: 71 Year
  Sex: Male
  Weight: 64 kg

DRUGS (22)
  1. PEGFILGRASTIM [Suspect]
     Active Substance: PEGFILGRASTIM
     Dosage: 3.6 MG, UNK
     Route: 058
     Dates: start: 20160313, end: 20160313
  2. AMRUBICIN HYDROCHLORIDE [Suspect]
     Active Substance: AMRUBICIN HYDROCHLORIDE
     Dosage: 45 MG/M2, UNK
     Route: 042
     Dates: start: 20160309, end: 20160313
  3. PEGFILGRASTIM [Suspect]
     Active Substance: PEGFILGRASTIM
     Dosage: 3.6 MG, UNK
     Route: 058
     Dates: start: 20160403, end: 20160403
  4. PEGFILGRASTIM [Suspect]
     Active Substance: PEGFILGRASTIM
     Dosage: 3.6 MG, UNK
     Route: 058
     Dates: start: 20160221, end: 20160221
  5. AMRUBICIN HYDROCHLORIDE [Suspect]
     Active Substance: AMRUBICIN HYDROCHLORIDE
     Dosage: 45 MG/M2, UNK
     Route: 042
     Dates: start: 20160127, end: 20160129
  6. JUVELA                             /00110502/ [Concomitant]
     Indication: METASTASES TO CENTRAL NERVOUS SYSTEM
     Dosage: 300 MG, UNK
     Route: 048
  7. PEGFILGRASTIM [Suspect]
     Active Substance: PEGFILGRASTIM
     Dosage: 3.6 MG, UNK
     Route: 058
     Dates: start: 20160131, end: 20160131
  8. PREDONINE [Concomitant]
     Active Substance: PREDNISOLONE\PREDNISOLONE ACETATE\PREDNISOLONE SODIUM SUCCINATE
     Indication: METASTASES TO CENTRAL NERVOUS SYSTEM
     Dosage: 10 MG, UNK
     Route: 048
  9. E KEPPRA [Concomitant]
     Active Substance: LEVETIRACETAM
     Indication: METASTASES TO CENTRAL NERVOUS SYSTEM
     Dosage: 2000 MG, UNK
     Route: 048
  10. ATORVASTATIN CALCIUM. [Concomitant]
     Active Substance: ATORVASTATIN CALCIUM
     Indication: DYSLIPIDAEMIA
     Dosage: 10 MG, UNK
     Route: 048
  11. PEGFILGRASTIM [Suspect]
     Active Substance: PEGFILGRASTIM
     Indication: COLONY STIMULATING FACTOR PROPHYLAXIS
     Dosage: 3.6 MG, UNK
     Route: 058
     Dates: start: 20151220, end: 20151220
  12. LEXIN                              /00052501/ [Concomitant]
     Active Substance: CARBAMAZEPINE
     Indication: METASTASES TO CENTRAL NERVOUS SYSTEM
     Dosage: 200 MG, UNK
     Route: 048
  13. BAKTAR [Concomitant]
     Active Substance: SULFAMETHOXAZOLE\TRIMETHOPRIM
     Indication: ANTIFUNGAL PROPHYLAXIS
     Dosage: 2 DF, 2X/WEEK
     Route: 048
  14. AMRUBICIN HYDROCHLORIDE [Suspect]
     Active Substance: AMRUBICIN HYDROCHLORIDE
     Dosage: 45 MG/M2, UNK
     Route: 042
     Dates: start: 20160330, end: 20160401
  15. RABEPRAZOLE NA [Concomitant]
     Active Substance: RABEPRAZOLE SODIUM
     Indication: GASTROOESOPHAGEAL REFLUX DISEASE
     Dosage: 10 MG, UNK
     Route: 048
  16. SPIRIVA [Concomitant]
     Active Substance: TIOTROPIUM BROMIDE MONOHYDRATE
     Indication: CHRONIC OBSTRUCTIVE PULMONARY DISEASE
     Dosage: 5 MUG, QD
     Route: 055
  17. PEGFILGRASTIM [Suspect]
     Active Substance: PEGFILGRASTIM
     Dosage: 3.6 MG, UNK
     Route: 058
     Dates: start: 20160110, end: 20160110
  18. AMRUBICIN HYDROCHLORIDE [Suspect]
     Active Substance: AMRUBICIN HYDROCHLORIDE
     Indication: SMALL CELL LUNG CANCER
     Dosage: 45 MG/M2, UNK
     Route: 042
     Dates: start: 20151216, end: 20151218
  19. AZILVA [Concomitant]
     Active Substance: AZILSARTAN KAMEDOXOMIL
     Indication: HYPERTENSION
     Dosage: 10 MG, UNK
     Route: 048
  20. AMRUBICIN HYDROCHLORIDE [Suspect]
     Active Substance: AMRUBICIN HYDROCHLORIDE
     Dosage: 45 MG/M2, UNK
     Route: 042
     Dates: start: 20160106, end: 20160108
  21. AMRUBICIN HYDROCHLORIDE [Suspect]
     Active Substance: AMRUBICIN HYDROCHLORIDE
     Dosage: 45 MG/M2, UNK
     Route: 042
     Dates: start: 20160217, end: 20160219
  22. AMLODIPINE [Concomitant]
     Active Substance: AMLODIPINE BESYLATE
     Indication: HYPERTENSION
     Dosage: 5 MG, UNK
     Route: 048

REACTIONS (4)
  - Chemotherapy [Unknown]
  - Off label use [Unknown]
  - Platelet count decreased [Recovered/Resolved]
  - Anaemia [Not Recovered/Not Resolved]

NARRATIVE: CASE EVENT DATE: 20151222
